FAERS Safety Report 7199861-5 (Version None)
Quarter: 2010Q4

REPORT INFORMATION
  Report Type: 
  Country: None (occurrence: None)
  Receive Date: 20101214
  Receipt Date: 20101130
  Transmission Date: 20110411
  Serious: Yes (Other)
  Sender: FDA-Public Use
  Company Number: 012118

PATIENT
  Age: 5 Year
  Sex: Male

DRUGS (5)
  1. BUSULFEX [Suspect]
     Indication: BONE MARROW TRANSPLANT
     Dosage: 4 MG/KG, DAILY DOSE
  2. CYCLOPHOSPHAMIDE [Concomitant]
  3. ANTI-THYMOCYTE GLOBULIN NOS [Concomitant]
  4. CYCLOSPORINE [Concomitant]
  5. METHOTREXATE [Concomitant]

REACTIONS (2)
  - CYTOMEGALOVIRUS INFECTION [None]
  - MUCOSAL INFLAMMATION [None]
